FAERS Safety Report 7150546-0 (Version None)
Quarter: 2010Q4

REPORT INFORMATION
  Report Type: 
  Country: None (occurrence: None)
  Receive Date: 20101124
  Receipt Date: 20101112
  Transmission Date: 20110411
  Serious: Yes (Hospitalization, Disabling, Other)
  Sender: FDA-Public Use
  Company Number: 2010P1002600

PATIENT
  Age: 97 Year
  Sex: Female
  Weight: 60.3284 kg

DRUGS (4)
  1. FENTANYL-25 [Suspect]
     Indication: POST HERPETIC NEURALGIA
     Dosage: 50 MCG/HR; TDER
     Route: 062
     Dates: start: 20100501, end: 20101111
  2. FENTANYL PATCH (WATSON) (NO PREF. NAME) [Suspect]
     Dates: start: 20101111
  3. NORCO 10MG/325MNG [Concomitant]
  4. DILAUDID [Concomitant]

REACTIONS (20)
  - ABASIA [None]
  - ACTIVITIES OF DAILY LIVING IMPAIRED [None]
  - APPLICATION SITE ERYTHEMA [None]
  - APPLICATION SITE PAIN [None]
  - BURNING SENSATION [None]
  - CARDIAC FAILURE CONGESTIVE [None]
  - CHRONIC OBSTRUCTIVE PULMONARY DISEASE [None]
  - CONTUSION [None]
  - DEMENTIA [None]
  - DRUG INEFFECTIVE [None]
  - GOUT [None]
  - IMMUNOSUPPRESSION [None]
  - PAIN [None]
  - PNEUMONIA [None]
  - PRODUCT SUBSTITUTION ISSUE [None]
  - PRURITUS GENERALISED [None]
  - SCRATCH [None]
  - SOMNOLENCE [None]
  - STAPHYLOCOCCAL INFECTION [None]
  - URINARY TRACT INFECTION [None]
